FAERS Safety Report 4953449-2 (Version None)
Quarter: 2006Q1

REPORT INFORMATION
  Report Type: 
  Country: None (occurrence: None)
  Receive Date: 20060324
  Receipt Date: 20060210
  Transmission Date: 20060701
  Serious: Yes (Hospitalization)
  Sender: FDA-Public Use
  Company Number: 2006UW02475

PATIENT
  Age: 76 Year
  Sex: Female
  Weight: 59.1 kg

DRUGS (13)
  1. CRESTOR [Suspect]
     Indication: DYSLIPIDAEMIA
     Route: 048
     Dates: start: 20051128, end: 20051201
  2. BIAXIN XL [Interacting]
     Dosage: 2 TABLETS
     Route: 048
     Dates: start: 20051128, end: 20051208
  3. AMLODIPINE [Concomitant]
     Route: 048
  4. COLCHICINE [Concomitant]
  5. SIMVASTATIN [Concomitant]
  6. ALLOPURINOL [Concomitant]
     Route: 048
  7. ENALAPRIL MALEATE [Concomitant]
     Route: 048
  8. HYDROCHLOROTHIAZIDE [Concomitant]
     Route: 048
  9. BISOPROLOL [Concomitant]
     Route: 048
  10. ACETYLSALICYLIC ACID SRT [Concomitant]
     Route: 048
  11. PANTOPRAZOLE [Concomitant]
     Route: 048
  12. VITAMIN B-12 [Concomitant]
     Dosage: 1 TABLET
     Route: 048
  13. VASERETIC [Concomitant]

REACTIONS (6)
  - BLOOD CREATINE PHOSPHOKINASE INCREASED [None]
  - BLOOD PRESSURE INCREASED [None]
  - DRUG INTERACTION [None]
  - HEADACHE [None]
  - MYOPATHY [None]
  - RHABDOMYOLYSIS [None]
